FAERS Safety Report 5902418-4 (Version None)
Quarter: 2008Q3

REPORT INFORMATION
  Report Type: 
  Country: None (occurrence: None)
  Receive Date: 20080929
  Receipt Date: 20080925
  Transmission Date: 20090109
  Serious: Yes (Life-Threatening)
  Sender: FDA-Public Use
  Company Number: JP-ASTRAZENECA-2008AP05673

PATIENT
  Age: 21342 Day
  Sex: Female
  Weight: 53.5 kg

DRUGS (1)
  1. NOLVADEX [Suspect]
     Indication: BREAST CANCER STAGE III
     Route: 048
     Dates: start: 20040116, end: 20080717

REACTIONS (5)
  - BRAIN OEDEMA [None]
  - DEPRESSED LEVEL OF CONSCIOUSNESS [None]
  - DIZZINESS [None]
  - INTRACRANIAL VENOUS SINUS THROMBOSIS [None]
  - NAUSEA [None]
